FAERS Safety Report 7680772-3 (Version None)
Quarter: 2011Q3

REPORT INFORMATION
  Report Type: 
  Country: None (occurrence: None)
  Receive Date: 20110812
  Receipt Date: 20110804
  Transmission Date: 20111222
  Serious: Yes (Other)
  Sender: FDA-Public Use
  Company Number: US-BAYER-201039747NA

PATIENT
  Age: 32 Year
  Sex: Female
  Weight: 77 kg

DRUGS (5)
  1. ASPIRIN [Concomitant]
     Dosage: 81 MG, UNK
  2. HYDROCODONE BITARTRATE AND ACETAMINOPHEN [Concomitant]
     Dosage: UNK
     Dates: start: 20080916
  3. ULTRAVATE [Concomitant]
     Dosage: UNK UNK, BID
     Route: 061
  4. SULFAMETHOXAZOLE [Concomitant]
     Dosage: UNK
     Dates: start: 20081218
  5. YAZ [Suspect]
     Indication: ACNE
     Dosage: UNK
     Route: 048
     Dates: start: 20080501, end: 20090501

REACTIONS (1)
  - DEEP VEIN THROMBOSIS [None]
